FAERS Safety Report 4641472-7 (Version None)
Quarter: 2005Q2

REPORT INFORMATION
  Report Type: 
  Country: None (occurrence: None)
  Receive Date: 20050421
  Receipt Date: 20040823
  Transmission Date: 20051028
  Serious: Yes (Death, Hospitalization, Other)
  Sender: FDA-Public Use
  Company Number: PHEH2004US09177

PATIENT
  Age: 79 Year
  Sex: Male
  Weight: 104 kg

DRUGS (28)
  1. ZOMETA [Suspect]
     Indication: PROSTATE CANCER METASTATIC
     Dosage: 4 MG, UNK
     Dates: start: 20021027, end: 20040727
  2. CHROMAGEN [Concomitant]
  3. DEXAMETHASONE TABLETS USP (NGX) [Concomitant]
     Dosage: 4 MG, BID FOR 10 DAYS
     Route: 048
  4. DEXAMETHASONE TABLETS USP (NGX) [Concomitant]
     Dosage: 2 MG, BID FOR 10 DAYS
  5. DEXAMETHASONE TABLETS USP (NGX) [Concomitant]
     Dosage: 4 MG, TID
     Dates: start: 20040501
  6. CEPHALEXIN [Concomitant]
  7. NEUROTON [Concomitant]
     Indication: NEUROPATHY
     Dosage: 300 MG, QHS
     Dates: start: 20040402
  8. TRIAMTERENE [Concomitant]
  9. PROPOXYPHENE HCL CAPSULES USP (NGX) [Concomitant]
  10. ANAESTHETICS, LOCAL [Concomitant]
     Dates: start: 20040501, end: 20040501
  11. TAXOL [Concomitant]
     Dates: end: 20030501
  12. ESTRAMUSTINE [Concomitant]
     Dates: end: 20030501
  13. COMPAZINE [Concomitant]
     Dosage: UNK, Q4H
  14. LUPRON [Concomitant]
  15. ARANESP [Concomitant]
  16. ZOLADEX [Concomitant]
  17. NORVASC [Concomitant]
     Dosage: 5 MG, QD
  18. CELEBREX [Concomitant]
     Indication: ARTHRALGIA
     Dosage: 200 MG, QD
  19. PREVACID [Concomitant]
     Dosage: 15 MG, BID
     Route: 048
     Dates: start: 20040223
  20. MAXZIDE [Concomitant]
     Dosage: 25 MG, QD
     Route: 048
     Dates: start: 20030715
  21. FOLTX [Concomitant]
  22. FECOL [Concomitant]
  23. DARVOCET-N 100 [Concomitant]
  24. CYANOCOBALAMIN W/PYRIDOXINE [Suspect]
  25. ANZEMET [Concomitant]
  26. TAGAMET [Concomitant]
  27. BENADRYL [Concomitant]
  28. KYTRIL [Concomitant]

REACTIONS (33)
  - ANAEMIA [None]
  - ASEPTIC NECROSIS BONE [None]
  - ASTHENIA [None]
  - BONE DEBRIDEMENT [None]
  - BONE DISORDER [None]
  - CONSTIPATION [None]
  - DEATH [None]
  - EPISTAXIS [None]
  - HAEMATURIA [None]
  - HERPES ZOSTER [None]
  - HYPOAESTHESIA [None]
  - IMPAIRED HEALING [None]
  - INFECTION [None]
  - JAW FRACTURE [None]
  - KLEBSIELLA INFECTION [None]
  - LOCAL ANAESTHESIA [None]
  - MASS [None]
  - METASTASES TO BONE [None]
  - NAUSEA [None]
  - NERVE INJURY [None]
  - NON-CARDIAC CHEST PAIN [None]
  - OSTEOMYELITIS [None]
  - PAIN [None]
  - PARAESTHESIA ORAL [None]
  - PATHOLOGICAL FRACTURE [None]
  - PULMONARY EMBOLISM [None]
  - PYREXIA [None]
  - RADIOTHERAPY [None]
  - RASH VESICULAR [None]
  - RHINORRHOEA [None]
  - SWELLING [None]
  - TOOTH EXTRACTION [None]
  - URINARY TRACT INFECTION [None]
